FAERS Safety Report 6384290-4 (Version None)
Quarter: 2009Q3

REPORT INFORMATION
  Report Type: 
  Country: None (occurrence: None)
  Receive Date: 20090929
  Receipt Date: 20090916
  Transmission Date: 20100115
  Serious: Yes (Disabling)
  Sender: FDA-Public Use
  Company Number: 8052370

PATIENT
  Sex: Female

DRUGS (2)
  1. KEPPRA [Suspect]
     Indication: EPILEPSY
     Dosage: /D PO
     Route: 048
     Dates: start: 20080101
  2. KEPPRA [Suspect]
     Indication: EPILEPSY
     Dosage: /D PO
     Route: 048

REACTIONS (1)
  - MYALGIA [None]
